FAERS Safety Report 19172031 (Version 2)
Quarter: 2021Q2

REPORT INFORMATION
  Report Type: Spontaneous
  Country: IT (occurrence: IT)
  Receive Date: 20210423
  Receipt Date: 20210503
  Transmission Date: 20210717
  Serious: Yes (Other)
  Sender: FDA-Public Use
  Company Number: IT-AUROBINDO-AUR-APL-2021-016459

PATIENT
  Age: 17 Year
  Sex: Male

DRUGS (18)
  1. GANCICLOVIR. [Suspect]
     Active Substance: GANCICLOVIR
     Dosage: 5 MG/KG, ONCE DAILY
     Route: 042
  2. FLUDARABINE [Concomitant]
     Active Substance: FLUDARABINE PHOSPHATE
     Indication: PRODUCT USED FOR UNKNOWN INDICATION
     Dosage: 40 MG/MQ DAY ?6 TO ?3
     Route: 065
  3. GANCICLOVIR. [Suspect]
     Active Substance: GANCICLOVIR
     Dosage: UNK, DAILY FOR 1 WEEK
     Route: 065
  4. MYCOPHENOLATE MOFETIL. [Concomitant]
     Active Substance: MYCOPHENOLATE MOFETIL
     Indication: ACUTE GRAFT VERSUS HOST DISEASE
     Dosage: 750 MG, TID (DAY 47)
     Route: 065
  5. PREDNISONE. [Concomitant]
     Active Substance: PREDNISONE
     Indication: PRODUCT USED FOR UNKNOWN INDICATION
     Dosage: UNK
     Route: 065
  6. FOSCARNET [Suspect]
     Active Substance: FOSCARNET
     Indication: CYTOMEGALOVIRUS VIRAEMIA
     Dosage: 60 MG/KG, EVERY 8 HOURS
     Route: 065
  7. ACYCLOVIR. [Concomitant]
     Active Substance: ACYCLOVIR
     Indication: PROPHYLAXIS
     Dosage: 250 MG/MQ, TID, FROM DAY ?1 TO +18
     Route: 065
  8. CICLOSPORIN [Concomitant]
     Active Substance: CYCLOSPORINE
     Indication: PROPHYLAXIS AGAINST GRAFT VERSUS HOST DISEASE
     Dosage: ON DAY ?1
     Route: 065
  9. THIOTEPA. [Concomitant]
     Active Substance: THIOTEPA
     Indication: PRODUCT USED FOR UNKNOWN INDICATION
     Dosage: 10 MG/KG/DAY ON DAY ?7
     Route: 065
  10. METHOTREXATE. [Concomitant]
     Active Substance: METHOTREXATE
     Indication: PROPHYLAXIS AGAINST GRAFT VERSUS HOST DISEASE
     Dosage: ON DAYS +1, +3, +6 AND +11
     Route: 065
  11. VALGANCICLOVIR. [Suspect]
     Active Substance: VALGANCICLOVIR
     Indication: CYTOMEGALOVIRUS VIRAEMIA
     Dosage: 900 MILLIGRAM, DAILY (450 MG, BID)
     Route: 065
  12. ACYCLOVIR. [Concomitant]
     Active Substance: ACYCLOVIR
     Dosage: 1200 MILLIGRAM, DAILY (400MG, TID)
     Route: 048
  13. RITUXIMAB. [Concomitant]
     Active Substance: RITUXIMAB
     Indication: EPSTEIN-BARR VIRAEMIA
     Dosage: 375 MG/M2/WEEK
     Route: 065
  14. GANCICLOVIR. [Suspect]
     Active Substance: GANCICLOVIR
     Indication: CYTOMEGALOVIRUS VIRAEMIA
     Dosage: 10 MILLIGRAM/KILOGRAM, ONCE A DAY (5 MG/KG,TWICE DAILY)
     Route: 042
  15. GANCICLOVIR. [Suspect]
     Active Substance: GANCICLOVIR
     Dosage: 10 MILLIGRAM/KILOGRAM, ONCE A DAY (5 MG/KG, BID)
     Route: 042
  16. GANCICLOVIR. [Suspect]
     Active Substance: GANCICLOVIR
     Dosage: 10 MILLIGRAM/KILOGRAM, ONCE A DAY
     Route: 042
  17. FOSCARNET [Suspect]
     Active Substance: FOSCARNET
     Dosage: 90 MG/KG, EVERY 12 HOURS
     Route: 065
  18. TREOSULFAN [Concomitant]
     Active Substance: TREOSULFAN
     Indication: PRODUCT USED FOR UNKNOWN INDICATION
     Dosage: 14G/MQ DAY ?6 TO ?4
     Route: 065

REACTIONS (4)
  - Acute graft versus host disease in intestine [Recovered/Resolved]
  - Drug ineffective [Unknown]
  - Acute graft versus host disease in skin [Recovered/Resolved]
  - Drug resistance [Unknown]
